FAERS Safety Report 15751939 (Version 1)
Quarter: 2018Q4

REPORT INFORMATION
  Report Type: Spontaneous
  Country: US (occurrence: US)
  Receive Date: 20181221
  Receipt Date: 20181221
  Transmission Date: 20190205
  Serious: Yes (Death, Hospitalization)
  Sender: FDA-Public Use
  Company Number: US-JNJFOC-20181226819

PATIENT
  Sex: Female

DRUGS (1)
  1. XARELTO [Suspect]
     Active Substance: RIVAROXABAN
     Indication: PRODUCT USED FOR UNKNOWN INDICATION
     Route: 048
     Dates: start: 20160729, end: 20170318

REACTIONS (4)
  - Subdural haematoma [Unknown]
  - Anaemia [Unknown]
  - Haemorrhagic anaemia [Unknown]
  - Death [Fatal]

NARRATIVE: CASE EVENT DATE: 20170204
